FAERS Safety Report 6978941-0 (Version None)
Quarter: 2010Q3

REPORT INFORMATION
  Report Type: 
  Country: None (occurrence: None)
  Receive Date: 20100913
  Receipt Date: 20100909
  Transmission Date: 20110219
  Serious: Yes (Hospitalization, Disabling)
  Sender: FDA-Public Use
  Company Number: US-MERCK-1008USA03800

PATIENT
  Age: 71 Year
  Sex: Male
  Weight: 70 kg

DRUGS (3)
  1. JANUVIA [Suspect]
     Indication: DIABETES MELLITUS
     Route: 048
     Dates: start: 20100707, end: 20100709
  2. AMARYL [Concomitant]
     Route: 048
  3. GLUCOPHAGE [Concomitant]
     Route: 048

REACTIONS (2)
  - CORONARY ARTERY DISEASE [None]
  - VOCAL CORD THICKENING [None]
